FAERS Safety Report 8432834-0 (Version None)
Quarter: 2012Q2

REPORT INFORMATION
  Report Type: 
  Country: None (occurrence: None)
  Receive Date: 20120613
  Receipt Date: 20120528
  Transmission Date: 20120825
  Serious: Yes (Other)
  Sender: FDA-Public Use
  Company Number: IT-TEVA-341895ISR

PATIENT
  Sex: Male

DRUGS (1)
  1. OXALIPLATIN [Suspect]

REACTIONS (2)
  - MYOCARDIAL ISCHAEMIA [None]
  - CHEST PAIN [None]
